FAERS Safety Report 20168453 (Version 4)
Quarter: 2022Q1

REPORT INFORMATION
  Report Type: Spontaneous
  Country: US (occurrence: US)
  Receive Date: 20211210
  Receipt Date: 20220211
  Transmission Date: 20220423
  Serious: Yes (Other)
  Sender: FDA-Public Use
  Company Number: US-ELI_LILLY_AND_COMPANY-US202112003700

PATIENT
  Age: 69 Year
  Sex: Male

DRUGS (2)
  1. EMGALITY [Suspect]
     Active Substance: GALCANEZUMAB-GNLM
     Indication: Migraine
     Dosage: 120 MG, MONTHLY (1/M)
     Route: 065
     Dates: start: 20211202
  2. SIMPONI [Concomitant]
     Active Substance: GOLIMUMAB
     Indication: Bone disorder

REACTIONS (7)
  - Deafness [Unknown]
  - Bronchitis [Unknown]
  - Sleep disorder due to a general medical condition [Unknown]
  - Hyperacusis [Unknown]
  - Injection site pain [Unknown]
  - Headache [Unknown]
  - Inappropriate schedule of product administration [Unknown]

NARRATIVE: CASE EVENT DATE: 20211202
